FAERS Safety Report 19596755 (Version 1)
Quarter: 2021Q3

REPORT INFORMATION
  Report Type: Spontaneous
  Country: FR (occurrence: FR)
  Receive Date: 20210723
  Receipt Date: 20210723
  Transmission Date: 20211014
  Serious: Yes (Hospitalization, Other)
  Sender: FDA-Public Use
  Company Number: FR-AUROBINDO-AUR-APL-2017-20128

PATIENT
  Age: 39 Year
  Sex: Female

DRUGS (12)
  1. PREDNISOLONE. [Suspect]
     Active Substance: PREDNISOLONE
     Dosage: 30 MILLIGRAM, ONCE A DAY
     Route: 048
  2. PREDNISOLONE. [Suspect]
     Active Substance: PREDNISOLONE
     Dosage: 10 MILLIGRAM, ONCE A DAY
     Route: 048
  3. PREDNISONE. [Suspect]
     Active Substance: PREDNISONE
     Dosage: 10 MG, DAILY (3 MONTHS AFTER1MG/KG/DAY)
     Route: 048
  4. CEFTRIAXONE. [Suspect]
     Active Substance: CEFTRIAXONE
     Indication: OSTEITIS
     Dosage: UNK
     Route: 065
  5. PREDNISOLONE. [Suspect]
     Active Substance: PREDNISOLONE
     Dosage: UNK, 2 BOLUS OF IV PREDNISONE
     Route: 042
  6. PREDNISONE. [Suspect]
     Active Substance: PREDNISONE
     Dosage: IV BOLUS PREDNISONE FOLLOWED BY ORAL PREDNISONE 30 MG/DAYX10 MONTHS
     Route: 050
  7. PREDNISOLONE. [Suspect]
     Active Substance: PREDNISOLONE
     Indication: DRUG REACTION WITH EOSINOPHILIA AND SYSTEMIC SYMPTOMS
     Dosage: 30 MILLIGRAM, ONCE A DAY
     Route: 048
  8. PREDNISONE. [Suspect]
     Active Substance: PREDNISONE
     Indication: PRODUCT USED FOR UNKNOWN INDICATION
     Dosage: 1 MILLIGRAM/KILOGRAM, ONCE A DAY
     Route: 048
  9. GENTAMICIN. [Suspect]
     Active Substance: GENTAMICIN
     Indication: OSTEITIS
     Dosage: UNK
     Route: 065
  10. NEFOPAM [Suspect]
     Active Substance: NEFOPAM
     Indication: OSTEITIS
     Dosage: UNK
     Route: 065
  11. TRAMADOL PROLONGED?RELEASE CAPSULE, HARD [Suspect]
     Active Substance: TRAMADOL
     Dosage: UNK
     Route: 048
  12. VANCOMYCIN [Suspect]
     Active Substance: VANCOMYCIN
     Indication: OSTEITIS
     Dosage: UNK
     Route: 042

REACTIONS (29)
  - Autoimmune thyroiditis [Recovered/Resolved]
  - Leukocytosis [Recovered/Resolved]
  - Hepatic cytolysis [Recovered/Resolved]
  - Cholestasis [Recovered/Resolved]
  - General physical health deterioration [Recovered/Resolved]
  - Hypotension [Recovered/Resolved]
  - Irritability [Unknown]
  - Basedow^s disease [Recovered/Resolved]
  - Face oedema [Recovered/Resolved]
  - Palpitations [Unknown]
  - Acute kidney injury [Recovered/Resolved]
  - Tachycardia [Unknown]
  - Pyrexia [Unknown]
  - Chills [Unknown]
  - Hot flush [Unknown]
  - Dermatitis exfoliative generalised [Recovered/Resolved]
  - Human herpes virus 6 serology positive [Recovering/Resolving]
  - Skin disorder [Recovered/Resolved]
  - Drug eruption [Recovered/Resolved]
  - Renal tubular disorder [Recovered/Resolved]
  - Drug reaction with eosinophilia and systemic symptoms [Recovered/Resolved]
  - Eosinophilia [Recovered/Resolved]
  - Motor dysfunction [Unknown]
  - Lymphadenopathy [Recovered/Resolved]
  - Amenorrhoea [Unknown]
  - Arthralgia [Not Recovered/Not Resolved]
  - Asthenia [Unknown]
  - Decreased appetite [Unknown]
  - Myalgia [Unknown]
